FAERS Safety Report 9315107 (Version 2)
Quarter: 2013Q2

REPORT INFORMATION
  Report Type: Spontaneous
  Country: US (occurrence: US)
  Receive Date: 20130529
  Receipt Date: 20130529
  Transmission Date: 20140414
  Serious: No
  Sender: FDA-Public Use
  Company Number: US-MYLANLABS-2012S1015012

PATIENT
  Age: 39 Year
  Sex: Female

DRUGS (7)
  1. ANAFRANIL [Suspect]
     Indication: OBSESSIVE-COMPULSIVE DISORDER
     Route: 048
     Dates: start: 201110
  2. BUPROPION HYDROCHLORIDE [Interacting]
     Indication: OBSESSIVE-COMPULSIVE DISORDER
     Route: 048
     Dates: start: 20120615, end: 20120708
  3. BUPROPION HYDROCHLORIDE [Interacting]
     Indication: OFF LABEL USE
     Route: 048
     Dates: start: 20120615, end: 20120708
  4. NEXIUM [Concomitant]
     Indication: GASTROOESOPHAGEAL REFLUX DISEASE
  5. ZYRTEC [Concomitant]
     Indication: MULTIPLE ALLERGIES
  6. IRON [Concomitant]
     Indication: ANAEMIA
  7. IBUPROFEN [Concomitant]

REACTIONS (6)
  - Cough [Recovering/Resolving]
  - Choking [Recovering/Resolving]
  - Dry mouth [Recovering/Resolving]
  - Drug interaction [Recovering/Resolving]
  - Throat irritation [Recovered/Resolved]
  - Malaise [Recovered/Resolved]
